FAERS Safety Report 7177367-7 (Version None)
Quarter: 2010Q4

REPORT INFORMATION
  Report Type: 
  Country: None (occurrence: None)
  Receive Date: 20101220
  Receipt Date: 20101206
  Transmission Date: 20110411
  Serious: Yes (Life-Threatening, Hospitalization, Other)
  Sender: FDA-Public Use
  Company Number: PHHY2010DE84841

PATIENT
  Age: 81 Year
  Sex: Male
  Weight: 74 kg

DRUGS (8)
  1. RASILEZ [Suspect]
     Indication: HYPERTENSION
     Dosage: 300 MG DAILY
     Route: 048
     Dates: start: 20080101, end: 20100811
  2. IBUPROFEN TABLETS [Suspect]
     Indication: BACK PAIN
     Dosage: 400 MG DAILY
     Route: 048
     Dates: start: 20100701, end: 20100809
  3. TOREM [Suspect]
     Dosage: 5 MG DAILY
     Route: 048
     Dates: start: 20100601, end: 20100811
  4. ALLOPURINOL [Suspect]
     Indication: HYPERURICAEMIA
     Dosage: 150 MG DAILY
     Route: 048
     Dates: start: 20080101, end: 20100811
  5. SIMVASTATIN [Suspect]
     Indication: HYPERLIPIDAEMIA
     Dosage: 20 MG DAILY
     Route: 048
     Dates: start: 20100520, end: 20100811
  6. BISOPROLOL [Concomitant]
     Indication: HYPERTENSION
     Dosage: 5 MG DAILY
     Route: 048
     Dates: start: 19950101
  7. AGGRENOX [Concomitant]
     Dosage: 1 DF, QD
     Route: 048
     Dates: start: 20100513
  8. PANTOPRAZOLE [Concomitant]
     Dosage: 2X 20 MG DAILY
     Route: 048

REACTIONS (6)
  - DECREASED APPETITE [None]
  - DIARRHOEA [None]
  - ESCHERICHIA INFECTION [None]
  - RENAL FAILURE ACUTE [None]
  - URINARY TRACT INFECTION [None]
  - WEIGHT DECREASED [None]
